FAERS Safety Report 18909830 (Version 1)
Quarter: 2021Q1

REPORT INFORMATION
  Report Type: Spontaneous
  Country: US (occurrence: US)
  Receive Date: 20210218
  Receipt Date: 20210218
  Transmission Date: 20210420
  Serious: Yes (Hospitalization)
  Sender: FDA-Public Use
  Company Number: None

PATIENT
  Age: 66 Year
  Sex: Male

DRUGS (1)
  1. XELODA [Suspect]
     Active Substance: CAPECITABINE
     Dates: start: 20210125

REACTIONS (3)
  - Abdominal pain [None]
  - Neutropenia [None]
  - Diarrhoea [None]

NARRATIVE: CASE EVENT DATE: 20210209
